FAERS Safety Report 4361078-7 (Version None)
Quarter: 2004Q2

REPORT INFORMATION
  Report Type: 
  Country: None (occurrence: None)
  Receive Date: 20040520
  Receipt Date: 20040114
  Transmission Date: 20050107
  Serious: Yes (Hospitalization)
  Sender: FDA-Public Use
  Company Number: JP-ROCHE-356243

PATIENT
  Age: 85 Year
  Sex: Female

DRUGS (11)
  1. TAMIFLU [Suspect]
     Route: 048
     Dates: start: 20040107, end: 20040112
  2. EMPYNASE [Concomitant]
     Indication: UPPER RESPIRATORY TRACT INFECTION
     Dosage: REPORTED AS EMPYNASE PD.
     Route: 048
     Dates: start: 20040107, end: 20040108
  3. ALDIOXA [Concomitant]
     Dosage: TRADE NAME REPORTED AS ALUSA
     Route: 048
     Dates: start: 20040107, end: 20040108
  4. ONEALFA [Concomitant]
     Indication: OSTEOPOROSIS
     Route: 048
     Dates: start: 20040107, end: 20040107
  5. ROCALTROL [Concomitant]
     Indication: OSTEOPOROSIS
     Route: 048
     Dates: start: 20031224, end: 20040106
  6. GASTER (JAPAN) [Concomitant]
     Indication: UPPER GASTROINTESTINAL HAEMORRHAGE
     Route: 042
     Dates: start: 20040111, end: 20040119
  7. CABAGIN U [Concomitant]
     Indication: UPPER GASTROINTESTINAL HAEMORRHAGE
     Route: 042
     Dates: start: 20040111, end: 20040120
  8. ASCORBIC ACID [Concomitant]
     Indication: VITAMIN SUPPLEMENTATION
     Dosage: ROUTE REPORTED AS DRIP
     Route: 050
     Dates: start: 20040107
  9. VITAMIN B COMPLEX CAP [Concomitant]
     Indication: VITAMIN SUPPLEMENTATION
     Dosage: ROUTE REPORTED AS DRIP DRUG REPORTED AS NORNICICAMIN (VITAMIN B COMPOUNDING)
     Route: 050
     Dates: start: 20040107
  10. FOSMICIN [Concomitant]
     Route: 050
     Dates: start: 20040107
  11. PRIMPERAN INJ [Concomitant]
     Indication: NAUSEA
     Dosage: ROUTE REPORTED AS DRIP.
     Route: 050
     Dates: start: 20040107

REACTIONS (11)
  - ABDOMINAL DISTENSION [None]
  - BLOOD CHLORIDE DECREASED [None]
  - BLOOD CREATINE PHOSPHOKINASE INCREASED [None]
  - BLOOD SODIUM DECREASED [None]
  - BLOOD URINE PRESENT [None]
  - C-REACTIVE PROTEIN INCREASED [None]
  - ELECTROLYTE IMBALANCE [None]
  - GASTROINTESTINAL OBSTRUCTION [None]
  - HEPATIC FUNCTION ABNORMAL [None]
  - PLEURAL EFFUSION [None]
  - UPPER GASTROINTESTINAL HAEMORRHAGE [None]
